FAERS Safety Report 5197470-0 (Version None)
Quarter: 2006Q4

REPORT INFORMATION
  Report Type: 
  Country: None (occurrence: None)
  Receive Date: 20060927
  Receipt Date: 20060721
  Transmission Date: 20070319
  Serious: Yes (Hospitalization)
  Sender: FDA-Public Use
  Company Number: US-CVT-061587

PATIENT
  Age: 86 Year
  Sex: Female
  Weight: 73 kg

DRUGS (13)
  1. RANEXA [Suspect]
     Indication: ANGINA PECTORIS
     Dosage: 500 MG, BID, ORAL
     Route: 048
     Dates: start: 20060622, end: 20060627
  2. CADUET (AMLODIPINE BESILATE, ATORVASTATIN CALCIUM) [Concomitant]
  3. PROTONIX [Concomitant]
  4. NITROGLYCERIN [Concomitant]
  5. MYLANTA (ALUMINUM HYDROXIDE GEL, DRIED, MAGNESIUM HYDROXIDE, SIMETICON [Concomitant]
  6. TUMS (CALCIUM CARBONATE) [Concomitant]
  7. SYNTHROID [Concomitant]
  8. NIACIN [Concomitant]
  9. TOPROL-XL [Concomitant]
  10. DIOVAN [Concomitant]
  11. ASPIRIN [Concomitant]
  12. NASAL PREPARATIONS [Concomitant]
  13. TYLENOL [Concomitant]

REACTIONS (6)
  - ABDOMINAL DISCOMFORT [None]
  - CHEST PAIN [None]
  - DYSPEPSIA [None]
  - ERUCTATION [None]
  - HYPOAESTHESIA [None]
  - THROAT TIGHTNESS [None]
